FAERS Safety Report 22818553 (Version 5)
Quarter: 2023Q4

REPORT INFORMATION
  Report Type: Spontaneous
  Country: IT (occurrence: IT)
  Receive Date: 20230814
  Receipt Date: 20231006
  Transmission Date: 20240109
  Serious: Yes (Other)
  Sender: FDA-Public Use
  Company Number: IT-ROCHE-3399561

PATIENT
  Age: 59 Year
  Sex: Female
  Weight: 52 kg

DRUGS (35)
  1. MABTHERA [Suspect]
     Active Substance: RITUXIMAB
     Indication: Chronic lymphocytic leukaemia
     Dosage: DOSE 375 MG/MQ
     Route: 065
     Dates: start: 20111101, end: 20120401
  2. MABTHERA [Suspect]
     Active Substance: RITUXIMAB
     Dosage: 500 MG/MQ
     Route: 065
     Dates: start: 20140701, end: 20150101
  3. VINCRISTINE [Suspect]
     Active Substance: VINCRISTINE
     Indication: Chronic lymphocytic leukaemia
     Route: 065
     Dates: start: 20230714, end: 20230805
  4. VINCRISTINE [Suspect]
     Active Substance: VINCRISTINE
     Indication: Richter^s syndrome
  5. DOXORUBICIN [Suspect]
     Active Substance: DOXORUBICIN
     Indication: Chronic lymphocytic leukaemia
     Route: 065
     Dates: start: 20230714, end: 20230805
  6. DOXORUBICIN [Suspect]
     Active Substance: DOXORUBICIN
     Indication: Richter^s syndrome
  7. BENDAMUSTINE [Suspect]
     Active Substance: BENDAMUSTINE
     Indication: Chronic lymphocytic leukaemia
     Route: 065
     Dates: start: 20140701, end: 20150101
  8. IMBRUVICA [Suspect]
     Active Substance: IBRUTINIB
     Indication: Chronic lymphocytic leukaemia
     Route: 065
     Dates: start: 20170101, end: 20200701
  9. CYCLOPHOSPHAMIDE [Suspect]
     Active Substance: CYCLOPHOSPHAMIDE
     Indication: Chronic lymphocytic leukaemia
     Route: 065
     Dates: start: 20111101, end: 20120401
  10. CYCLOPHOSPHAMIDE [Suspect]
     Active Substance: CYCLOPHOSPHAMIDE
     Indication: Richter^s syndrome
     Route: 065
     Dates: start: 20230714, end: 20230805
  11. RITUXIMAB [Suspect]
     Active Substance: RITUXIMAB
     Indication: Chronic lymphocytic leukaemia
     Route: 065
     Dates: start: 20200801, end: 20230501
  12. RITUXIMAB [Suspect]
     Active Substance: RITUXIMAB
     Route: 065
     Dates: start: 20230501, end: 20230701
  13. VENETOCLAX [Suspect]
     Active Substance: VENETOCLAX
     Indication: Chronic lymphocytic leukaemia
     Route: 065
     Dates: start: 20200801, end: 20230501
  14. RUXIENCE [Suspect]
     Active Substance: RITUXIMAB-PVVR
     Indication: Chronic lymphocytic leukaemia
     Route: 065
     Dates: start: 20230714, end: 20230805
  15. RUXIENCE [Suspect]
     Active Substance: RITUXIMAB-PVVR
     Indication: Richter^s syndrome
     Route: 065
     Dates: start: 20230805
  16. IDELALISIB [Suspect]
     Active Substance: IDELALISIB
     Indication: Chronic lymphocytic leukaemia
     Route: 065
     Dates: start: 20230501, end: 20230701
  17. FLUDARABINE [Suspect]
     Active Substance: FLUDARABINE PHOSPHATE
     Indication: Chronic lymphocytic leukaemia
     Route: 065
     Dates: start: 20111101, end: 20120401
  18. PREDNISONE [Suspect]
     Active Substance: PREDNISONE
     Indication: Chronic lymphocytic leukaemia
     Route: 065
     Dates: start: 20230714, end: 20230805
  19. PREDNISONE [Suspect]
     Active Substance: PREDNISONE
     Indication: Richter^s syndrome
  20. ZYDELIG [Concomitant]
     Active Substance: IDELALISIB
  21. ACETAMINOPHEN\OXYCODONE HYDROCHLORIDE [Concomitant]
     Active Substance: ACETAMINOPHEN\OXYCODONE HYDROCHLORIDE
  22. ENOXAPARIN [Concomitant]
     Active Substance: ENOXAPARIN
  23. ATORVASTATIN [Concomitant]
     Active Substance: ATORVASTATIN
  24. LAMIVUDINE [Concomitant]
     Active Substance: LAMIVUDINE
  25. CANRENOATE POTASSIUM [Concomitant]
     Active Substance: CANRENOATE POTASSIUM
  26. XANAX [Concomitant]
     Active Substance: ALPRAZOLAM
  27. PANTOPRAZOLE [Concomitant]
     Active Substance: PANTOPRAZOLE
  28. ESCITALOPRAM [Concomitant]
     Active Substance: ESCITALOPRAM OXALATE
  29. ALLOPURINOL [Concomitant]
     Active Substance: ALLOPURINOL
  30. NALOXONE HYDROCHLORIDE\OXYCODONE HYDROCHLORIDE [Concomitant]
     Active Substance: NALOXONE HYDROCHLORIDE\OXYCODONE HYDROCHLORIDE
  31. BROMAZEPAM [Concomitant]
     Active Substance: BROMAZEPAM
  32. FOLIC ACID [Concomitant]
     Active Substance: FOLIC ACID
  33. ACYCLOVIR [Concomitant]
     Active Substance: ACYCLOVIR
  34. BACTRIM [Concomitant]
     Active Substance: SULFAMETHOXAZOLE\TRIMETHOPRIM
  35. OMEGA-3-ACID ETHYL ESTERS [Concomitant]
     Active Substance: OMEGA-3-ACID ETHYL ESTERS

REACTIONS (4)
  - Clostridium difficile colitis [Recovered/Resolved]
  - Off label use [Unknown]
  - Therapy non-responder [Unknown]
  - Disease progression [Unknown]

NARRATIVE: CASE EVENT DATE: 20230716
